FAERS Safety Report 8435288-3 (Version None)
Quarter: 2012Q2

REPORT INFORMATION
  Report Type: 
  Country: None (occurrence: None)
  Receive Date: 20120614
  Receipt Date: 20120611
  Transmission Date: 20120825
  Serious: Yes (Death)
  Sender: FDA-Public Use
  Company Number: US-PFIZER INC-2012141435

PATIENT
  Sex: Female

DRUGS (2)
  1. XALKORI [Suspect]
     Indication: LUNG NEOPLASM MALIGNANT
  2. XALKORI [Suspect]
     Indication: TRACHEAL NEOPLASM
     Dosage: 250 MG, ONE CAPSULE 2X/DAY
     Route: 048
     Dates: start: 20120414

REACTIONS (1)
  - DEATH [None]
